FAERS Safety Report 25846170 (Version 1)
Quarter: 2025Q3

REPORT INFORMATION
  Report Type: Spontaneous
  Country: SA (occurrence: SA)
  Receive Date: 20250925
  Receipt Date: 20250925
  Transmission Date: 20251021
  Serious: Yes (Hospitalization, Other)
  Sender: ACCORD
  Company Number: SA-Accord-505820

PATIENT
  Age: 19 Year
  Sex: Male

DRUGS (2)
  1. METHOTREXATE [Suspect]
     Active Substance: METHOTREXATE
     Indication: B-cell type acute leukaemia
     Route: 037
  2. RITUXIMAB [Suspect]
     Active Substance: RITUXIMAB
     Indication: B-cell type acute leukaemia

REACTIONS (4)
  - Neutropenia [Recovered/Resolved]
  - Neutropenic colitis [Recovered/Resolved]
  - Ileal perforation [Recovered/Resolved]
  - Gastrointestinal mucormycosis [Recovered/Resolved]
